FAERS Safety Report 7651394-5 (Version None)
Quarter: 2011Q3

REPORT INFORMATION
  Report Type: 
  Country: None (occurrence: None)
  Receive Date: 20110802
  Receipt Date: 20110721
  Transmission Date: 20111222
  Serious: Yes (Other)
  Sender: FDA-Public Use
  Company Number: PHEH2010US03428

PATIENT
  Sex: Female

DRUGS (4)
  1. PERIDEX [Concomitant]
  2. SYNTHROID [Concomitant]
  3. AREDIA [Suspect]
  4. FLONASE [Concomitant]

REACTIONS (8)
  - INJURY [None]
  - ANXIETY [None]
  - ANAEMIA [None]
  - ANHEDONIA [None]
  - DISABILITY [None]
  - PAIN [None]
  - LEUKAEMIA [None]
  - OSTEONECROSIS OF JAW [None]
